FAERS Safety Report 10084507 (Version 1)
Quarter: 2014Q2

REPORT INFORMATION
  Report Type: Report from Study
  Country: US (occurrence: US)
  Receive Date: 20140417
  Receipt Date: 20140417
  Transmission Date: 20141212
  Serious: Yes (Other)
  Sender: FDA-Public Use
  Company Number: PHEH2014US007592

PATIENT
  Sex: Male

DRUGS (15)
  1. EXELON PATCH [Suspect]
     Dosage: 13.3 MG, QD
     Route: 062
  2. NEXIUM//ESOMEPRAZOLE MAGNESIUM [Concomitant]
     Dosage: 40 MG, UNK
  3. BENZTROPINE [Concomitant]
     Dosage: UNK UKN, UNK
  4. TOPIRAMATE [Concomitant]
     Dosage: UNK UKN, UNK
  5. BUSPIRONE [Concomitant]
     Dosage: UNK UKN, UNK
  6. ALPRAZOLAM [Concomitant]
     Dosage: UNK UKN, UNK
  7. MIRTAZAPINE [Concomitant]
     Dosage: UNK UKN, UNK
  8. CLOPIDOGREL [Concomitant]
     Dosage: UNK UKN, UNK
  9. XARELTO [Concomitant]
     Dosage: UNK UKN, UNK
  10. PLAVIX [Concomitant]
     Dosage: UNK UKN, UNK
  11. REMERON [Concomitant]
     Dosage: UNK UKN, UNK
  12. BUSPAR [Concomitant]
     Dosage: UNK UKN, UNK
  13. TOPAMAX [Concomitant]
     Dosage: UNK UKN, UNK
  14. COGENTIN [Concomitant]
     Dosage: UNK UKN, UNK
  15. AZILECT [Concomitant]
     Dosage: UNK UKN, UNK

REACTIONS (6)
  - Hiatus hernia [Unknown]
  - Parkinson^s disease [Unknown]
  - Dementia [Unknown]
  - Depression [Unknown]
  - Angiopathy [Unknown]
  - Anxiety [Unknown]
